FAERS Safety Report 8535140-9 (Version None)
Quarter: 2012Q3

REPORT INFORMATION
  Report Type: 
  Country: None (occurrence: None)
  Receive Date: 20120724
  Receipt Date: 20080523
  Transmission Date: 20120928
  Serious: Yes (Other)
  Sender: FDA-Public Use
  Company Number: CO-PFIZER INC-2012177691

PATIENT
  Age: 52 Year
  Sex: Female

DRUGS (1)
  1. LIPITOR [Suspect]
     Dosage: 10 MG, ONCE DAILY
     Route: 048

REACTIONS (2)
  - CARDIAC FAILURE [None]
  - VIITH NERVE PARALYSIS [None]
